FAERS Safety Report 10635764 (Version 1)
Quarter: 2014Q4

REPORT INFORMATION
  Report Type: Spontaneous
  Country: US (occurrence: US)
  Receive Date: 20141205
  Receipt Date: 20141205
  Transmission Date: 20150529
  Serious: No
  Sender: FDA-Public Use
  Company Number: US-ELI_LILLY_AND_COMPANY-US201411008468

PATIENT
  Age: 77 Year
  Sex: Female

DRUGS (4)
  1. LEVEMIR [Concomitant]
     Active Substance: INSULIN DETEMIR
     Dosage: UNK
  2. HUMALOG [Suspect]
     Active Substance: INSULIN LISPRO
     Dosage: 10 U, QD
     Route: 065
     Dates: start: 201406
  3. HUMALOG [Suspect]
     Active Substance: INSULIN LISPRO
     Dosage: 44 U, EACH EVENING
     Route: 065
     Dates: start: 201406
  4. HUMALOG [Suspect]
     Active Substance: INSULIN LISPRO
     Indication: TYPE 1 DIABETES MELLITUS
     Dosage: 10 U, EACH MORNING
     Route: 065
     Dates: start: 201406

REACTIONS (2)
  - Underdose [Unknown]
  - Hypoacusis [Unknown]

NARRATIVE: CASE EVENT DATE: 20141119
